FAERS Safety Report 21279410 (Version 1)
Quarter: 2022Q3

REPORT INFORMATION
  Report Type: Spontaneous
  Country: US (occurrence: US)
  Receive Date: 20220901
  Receipt Date: 20220901
  Transmission Date: 20221027
  Serious: Yes (Hospitalization)
  Sender: FDA-Public Use
  Company Number: US-TAKEDA-2022TUS059093

PATIENT
  Sex: Female
  Weight: 64 kg

DRUGS (2)
  1. GAMMAGARD LIQUID [Suspect]
     Active Substance: HUMAN IMMUNOGLOBULIN G
     Indication: Encephalitis autoimmune
     Dosage: 30 GRAM
     Route: 042
     Dates: start: 20220823
  2. GAMMAGARD LIQUID [Suspect]
     Active Substance: HUMAN IMMUNOGLOBULIN G
     Indication: Immune system disorder
     Dosage: 35 GRAM
     Route: 042
     Dates: start: 20220824

REACTIONS (4)
  - Hospitalisation [Unknown]
  - Product preparation error [Unknown]
  - Product use in unapproved indication [Unknown]
  - Incorrect dose administered [Unknown]
